FAERS Safety Report 13189942 (Version 2)
Quarter: 2017Q1

REPORT INFORMATION
  Report Type: Spontaneous
  Country: US (occurrence: US)
  Receive Date: 20170206
  Receipt Date: 20170310
  Transmission Date: 20170428
  Serious: Yes (Hospitalization)
  Sender: FDA-Public Use
  Company Number: US-PFIZER INC-2017045637

PATIENT
  Age: 44 Year
  Sex: Female
  Weight: 70 kg

DRUGS (20)
  1. TYLENOL ARTHRITIS PAIN [Concomitant]
     Active Substance: ACETAMINOPHEN
     Dosage: 3000 MG, AS NEEDED (TWICE DAILY AS NEEDED)
     Route: 048
  2. OMEPRAZOLE. [Concomitant]
     Active Substance: OMEPRAZOLE
     Dosage: 20 MG, DAILY
     Route: 048
  3. SIMPONI [Concomitant]
     Active Substance: GOLIMUMAB
     Dosage: UNK (50 MG PER 0.5 ML AUTO INJECTOR)
  4. ACTEMRA [Concomitant]
     Active Substance: TOCILIZUMAB
     Indication: RHEUMATOID ARTHRITIS
     Dosage: UNK (162 MG/0.9ML SOSY),(ADMINISTER 1 SYRINGE SUBCUTANEOUSLY EVERY 14 DAYS)
     Route: 058
  5. TYLENOL ARTHRITIS PAIN [Concomitant]
     Active Substance: ACETAMINOPHEN
     Indication: PAIN
     Dosage: 3000 MG, 2X/DAY
     Route: 048
     Dates: start: 20150807
  6. OMEPRAZOLE. [Concomitant]
     Active Substance: OMEPRAZOLE
     Dosage: 20 MG, DAILY
     Route: 048
  7. ROBITUSSIN AC [Concomitant]
     Active Substance: CODEINE PHOSPHATE\GUAIFENESIN
     Indication: COUGH
     Dosage: 5 ML, AS NEEDED (100 MG-10 MG/5 ML),(TAKE 5 ML BY MOUTH EVERY 4 HOURS AS NEEDED )
     Route: 048
     Dates: start: 20160722, end: 20160909
  8. OMEPRAZOLE. [Concomitant]
     Active Substance: OMEPRAZOLE
     Dosage: 29 UNK, UNK
  9. FOLIC ACID. [Concomitant]
     Active Substance: FOLIC ACID
     Dosage: 1 MG, DAILY
     Route: 048
     Dates: start: 20160304, end: 20160728
  10. DUONEB [Concomitant]
     Active Substance: ALBUTEROL SULFATE\IPRATROPIUM BROMIDE
     Indication: DYSPNOEA
     Dosage: UNK (0.5MG/2.5MG/3ML NEB SOLN: USE 1 AMPULE VIA NEBULIZER EVERY 6 HOURS)
  11. XOPENEX [Concomitant]
     Active Substance: LEVALBUTEROL HYDROCHLORIDE
     Indication: COUGH
  12. METHOTREXATE SODIUM. [Suspect]
     Active Substance: METHOTREXATE SODIUM
     Indication: RHEUMATOID ARTHRITIS
     Dosage: UNK
     Route: 048
  13. METHOTREXATE SODIUM. [Suspect]
     Active Substance: METHOTREXATE SODIUM
     Indication: RHEUMATOID ARTHRITIS
     Dosage: UNK (250/10 ML SOLUTION)
  14. ALEVE [Concomitant]
     Active Substance: NAPROXEN SODIUM
     Indication: PAIN
     Dosage: 440 MG, AS NEEDED (TWICE DAILY)
     Route: 048
     Dates: end: 20160909
  15. DUONEB [Concomitant]
     Active Substance: ALBUTEROL SULFATE\IPRATROPIUM BROMIDE
     Indication: WHEEZING
     Dosage: UNK UNK, AS NEEDED(0.5MG/2.5MG/3ML NEB SOLN), (1 AMPULE VIA NEBULIZER EVERY 6 HOURS)
     Dates: start: 20160722, end: 20160729
  16. XOPENEX [Concomitant]
     Active Substance: LEVALBUTEROL HYDROCHLORIDE
     Indication: WHEEZING
     Dosage: UNK UNK, AS NEEDED (0.63MG/3ML NEB SOLN: USE 1 AMPULE VIA NEBULIZER EVERY 4 HOURS)
     Dates: start: 20160722, end: 20161221
  17. LEVAQUIN [Concomitant]
     Active Substance: LEVOFLOXACIN
     Dosage: 500 MG, DAILY
     Route: 048
     Dates: start: 20160723, end: 20160729
  18. MIRENA [Concomitant]
     Active Substance: LEVONORGESTREL
     Dosage: UNK (20MCG/24HR IUD: INSERT 1 DEVICE VIA INTRAUTERINE ROUTE ONCE)
     Route: 015
  19. XOPENEX [Concomitant]
     Active Substance: LEVALBUTEROL HYDROCHLORIDE
     Indication: DYSPNOEA
     Dosage: UNK (0.63MG/3ML NEB SOLN: USE 1 AMPULE VIA NEBULIZER EVERY 4 HOURS)
  20. PREDNISONE. [Concomitant]
     Active Substance: PREDNISONE
     Dosage: 60 MG, DAILY(TAKE 6 TABS BY MOUTH DAILY WITH BREAKFAST)
     Route: 048
     Dates: start: 20160722, end: 20160729

REACTIONS (1)
  - Pneumonitis [Unknown]
